FAERS Safety Report 16667541 (Version 1)
Quarter: 2019Q3

REPORT INFORMATION
  Report Type: Spontaneous
  Country: DE (occurrence: DE)
  Receive Date: 20190805
  Receipt Date: 20190805
  Transmission Date: 20191004
  Serious: Yes (Hospitalization)
  Sender: FDA-Public Use
  Company Number: DE-TEVA-2019-DE-1087883

PATIENT
  Age: 38 Year
  Sex: Male

DRUGS (2)
  1. MITOXANTRONE [Suspect]
     Active Substance: MITOXANTRONE HYDROCHLORIDE
     Indication: CHLOROMA
     Dosage: ADMINISTERED AS A PART OF INDUCTION CHEMOTHERAPY.
     Route: 065
  2. CYTARABINE. [Suspect]
     Active Substance: CYTARABINE
     Indication: CHLOROMA
     Dosage: HIGH DOSE CYTARABINE AS A PART OF INDUCTION CHEMOTHERAPY.
     Route: 065

REACTIONS (5)
  - Acute kidney injury [Recovered/Resolved]
  - Urinary retention [Recovered/Resolved]
  - Parametritis [Recovered/Resolved]
  - Bacterial infection [Recovered/Resolved]
  - Septic shock [Recovered/Resolved]
